FAERS Safety Report 9684539 (Version 4)
Quarter: 2014Q2

REPORT INFORMATION
  Report Type: Spontaneous
  Country: JP (occurrence: JP)
  Receive Date: 20131112
  Receipt Date: 20140521
  Transmission Date: 20141212
  Serious: Yes (Other)
  Sender: FDA-Public Use
  Company Number: JP-ROCHE-1299401

PATIENT
  Age: 50 Year
  Sex: Female
  Weight: 41 kg

DRUGS (8)
  1. MIRCERA [Suspect]
     Indication: NEPHROGENIC ANAEMIA
     Route: 058
     Dates: start: 201111, end: 20131004
  2. CELLCEPT [Suspect]
     Indication: PROPHYLAXIS AGAINST TRANSPLANT REJECTION
     Route: 048
     Dates: start: 19990311
  3. PROGRAF [Concomitant]
     Indication: PROPHYLAXIS AGAINST TRANSPLANT REJECTION
     Route: 048
     Dates: start: 19990311
  4. MEDROL [Concomitant]
     Indication: PROPHYLAXIS AGAINST TRANSPLANT REJECTION
     Route: 048
     Dates: start: 19990311
  5. ULGUT [Concomitant]
     Route: 048
  6. DIOVAN [Concomitant]
     Route: 048
  7. NORVASC [Concomitant]
     Route: 048
  8. FEBURIC [Concomitant]
     Route: 048

REACTIONS (1)
  - Myelodysplastic syndrome [Recovering/Resolving]
